FAERS Safety Report 17871154 (Version 2)
Quarter: 2020Q3

REPORT INFORMATION
  Report Type: Report from Study
  Country: US (occurrence: US)
  Receive Date: 20200608
  Receipt Date: 20200701
  Transmission Date: 20201103
  Serious: Yes (Life-Threatening, Other)
  Sender: FDA-Public Use
  Company Number: US-MYLANLABS-2020M1054427

PATIENT
  Age: 45 Year
  Sex: Male
  Weight: 88.9 kg

DRUGS (9)
  1. MIRALAX [Concomitant]
     Active Substance: POLYETHYLENE GLYCOL 3350
  2. BACTRIM [Interacting]
     Active Substance: SULFAMETHOXAZOLE\TRIMETHOPRIM
     Indication: PRODUCT USED FOR UNKNOWN INDICATION
     Dosage: UNK
  3. CLOZAPINE. [Suspect]
     Active Substance: CLOZAPINE
     Indication: PSYCHOTIC DISORDER
     Dosage: 200 MG AM HS AND 100 MG NOON
     Route: 048
  4. DEPAKOTE ER [Concomitant]
     Active Substance: DIVALPROEX SODIUM
     Dosage: UNK
  5. CLONAZEPAM. [Concomitant]
     Active Substance: CLONAZEPAM
  6. METOPROLOL. [Concomitant]
     Active Substance: METOPROLOL
  7. CLOZAPINE. [Interacting]
     Active Substance: CLOZAPINE
     Indication: AGGRESSION
  8. HYDROXYZINE [Concomitant]
     Active Substance: HYDROXYZINE HYDROCHLORIDE
  9. SYNTHROID [Concomitant]
     Active Substance: LEVOTHYROXINE SODIUM

REACTIONS (2)
  - Neutropenia [Recovered/Resolved]
  - Drug interaction [Unknown]

NARRATIVE: CASE EVENT DATE: 20200527
